FAERS Safety Report 5467602-5 (Version None)
Quarter: 2007Q3

REPORT INFORMATION
  Report Type: 
  Country: None (occurrence: None)
  Receive Date: 20070921
  Receipt Date: 20070911
  Transmission Date: 20080115
  Serious: Yes (Hospitalization)
  Sender: FDA-Public Use
  Company Number: SPV1-2007-04103

PATIENT
  Sex: Female

DRUGS (3)
  1. LIALDA [Suspect]
     Dates: start: 20070101
  2. AZATHIOPRINE [Concomitant]
  3. ASACOL [Concomitant]

REACTIONS (1)
  - PNEUMONITIS [None]
